FAERS Safety Report 6248509-2 (Version None)
Quarter: 2009Q2

REPORT INFORMATION
  Report Type: 
  Country: None (occurrence: None)
  Receive Date: 20090629
  Receipt Date: 20090622
  Transmission Date: 20091009
  Serious: Yes (Life-Threatening)
  Sender: FDA-Public Use
  Company Number: JP-ROCHE-640260

PATIENT
  Age: 65 Year
  Sex: Male
  Weight: 34 kg

DRUGS (2)
  1. ROCEPHIN [Suspect]
     Indication: INFECTION
     Route: 041
     Dates: start: 20080712, end: 20080715
  2. RASENAZOLIN [Suspect]
     Indication: INFECTION
     Route: 041
     Dates: start: 20080711, end: 20080712

REACTIONS (2)
  - RENAL FAILURE ACUTE [None]
  - TUBULOINTERSTITIAL NEPHRITIS [None]
